FAERS Safety Report 7791784-3 (Version None)
Quarter: 2011Q4

REPORT INFORMATION
  Report Type: 
  Country: None (occurrence: None)
  Receive Date: 20111003
  Receipt Date: 20110927
  Transmission Date: 20120403
  Serious: Yes (Other)
  Sender: FDA-Public Use
  Company Number: US-PFIZER INC-2011230183

PATIENT
  Sex: Female
  Weight: 50.34 kg

DRUGS (3)
  1. COREG [Concomitant]
     Dosage: UNK
  2. VERAPAMIL [Concomitant]
     Dosage: UNK
  3. XANAX [Suspect]
     Indication: MUSCLE SPASMS
     Dosage: 0.25 MG, 1X/DAY
     Route: 048

REACTIONS (2)
  - NAUSEA [None]
  - HALLUCINATION [None]
